FAERS Safety Report 10891614 (Version 3)
Quarter: 2018Q1

REPORT INFORMATION
  Report Type: Spontaneous
  Country: US (occurrence: US)
  Receive Date: 20150306
  Receipt Date: 20180313
  Transmission Date: 20180508
  Serious: Yes (Death, Hospitalization, Other)
  Sender: FDA-Public Use
  Company Number: US-ELI_LILLY_AND_COMPANY-US201503001479

PATIENT
  Age: 56 Year
  Sex: Male
  Weight: 66.67 kg

DRUGS (11)
  1. NEXIUM [Concomitant]
     Active Substance: ESOMEPRAZOLE MAGNESIUM
     Indication: ABDOMINAL DISCOMFORT
     Dosage: 40 MG, EACH MORNING
     Route: 048
  2. AXIRON [Suspect]
     Active Substance: TESTOSTERONE
     Indication: ASTHENIA
     Dosage: UNK, UNKNOWN
     Route: 065
     Dates: start: 20121017, end: 20121216
  3. PROMETHAZINE [Concomitant]
     Active Substance: PROMETHAZINE\PROMETHAZINE HYDROCHLORIDE
     Indication: NAUSEA
     Dosage: 25 MG, EVERY 4 HRS
     Route: 048
  4. PROMETHAZINE [Concomitant]
     Active Substance: PROMETHAZINE\PROMETHAZINE HYDROCHLORIDE
     Indication: VOMITING
  5. LORTAB                             /00917501/ [Concomitant]
     Active Substance: LORATADINE
     Indication: PAIN
     Dosage: 1 DF, EVERY 6 HRS
     Route: 048
  6. AXIRON [Suspect]
     Active Substance: TESTOSTERONE
     Indication: BLOOD TESTOSTERONE DECREASED
     Dosage: 60 MG, EACH MORNING
     Route: 061
     Dates: start: 20120223, end: 20120803
  7. NORVASC [Concomitant]
     Active Substance: AMLODIPINE BESYLATE
     Indication: BLOOD PRESSURE MEASUREMENT
     Dosage: 5 MG, QD
     Route: 048
  8. MS CONTIN [Concomitant]
     Active Substance: MORPHINE SULFATE
     Indication: PRODUCT USED FOR UNKNOWN INDICATION
     Dosage: 30 MG, BID
     Route: 048
  9. REMERON [Concomitant]
     Active Substance: MIRTAZAPINE
     Indication: PRODUCT USED FOR UNKNOWN INDICATION
     Dosage: 15 MG, EACH EVENING
     Route: 048
  10. AXIRON [Suspect]
     Active Substance: TESTOSTERONE
     Indication: SEXUAL DYSFUNCTION
  11. ATACAND [Concomitant]
     Active Substance: CANDESARTAN CILEXETIL
     Indication: BLOOD PRESSURE MEASUREMENT
     Dosage: 1 DF, QD
     Route: 048

REACTIONS (4)
  - Deep vein thrombosis [Recovering/Resolving]
  - Cardiovascular disorder [Unknown]
  - Hepatocellular carcinoma [Fatal]
  - Cardio-respiratory arrest [Fatal]

NARRATIVE: CASE EVENT DATE: 2012
